FAERS Safety Report 10748224 (Version 1)
Quarter: 2015Q1

REPORT INFORMATION
  Report Type: Spontaneous
  Country: US (occurrence: None)
  Receive Date: 20150120
  Receipt Date: 20150120
  Transmission Date: 20150721
  Serious: No
  Sender: FDA-Public Use
  Company Number: AEGR001038

PATIENT
  Age: 64 Year
  Sex: Female
  Weight: 77.1 kg

DRUGS (5)
  1. OMEGA 3 6 9 (OMEGA 9 FATTY ACIDS, OMEGA-3 FATTY ACIDS, OMEGA-6 FATTY ACIDS) [Concomitant]
  2. JUXTAPID [Suspect]
     Active Substance: LOMITAPIDE MESYLATE
     Route: 048
     Dates: start: 201405, end: 20140625
  3. MAXZIDE (HYDROCHLOROTHIAZIDE, TRIAMTERENE) [Concomitant]
  4. ASPIRIN (ACETYLSALICYLIC ACID) [Concomitant]
     Active Substance: ASPIRIN
  5. VITAMIN E (TOCOPHERYL ACETATE) [Concomitant]

REACTIONS (2)
  - Low density lipoprotein increased [None]
  - Product used for unknown indication [None]

NARRATIVE: CASE EVENT DATE: 201405
